FAERS Safety Report 17184954 (Version 2)
Quarter: 2020Q1

REPORT INFORMATION
  Report Type: Spontaneous
  Country: US (occurrence: US)
  Receive Date: 20191220
  Receipt Date: 20200204
  Transmission Date: 20200409
  Serious: Yes (Other)
  Sender: FDA-Public Use
  Company Number: US-AKORN PHARMACEUTICALS-2019AKN02497

PATIENT
  Age: 24 Year
  Sex: Female

DRUGS (3)
  1. MYORISAN [Suspect]
     Active Substance: ISOTRETINOIN
     Dosage: 10 MG, 2X/DAY (AVERAGE DAILY DOSE: 20 MG)
     Dates: start: 20191003, end: 20191205
  2. BIRTH CONTROL PILLS (UNSPECIFIED) [Concomitant]
     Active Substance: UNSPECIFIED INGREDIENT
  3. ISOTRETINOIN (AMNEAL PHARMACEUTICALS, LLC) [Suspect]
     Active Substance: ISOTRETINOIN
     Dosage: 10 MG, 2X/DAY (AVERAGE DAILY DOSE: 20 MG)
     Dates: start: 20191024, end: 2019

REACTIONS (2)
  - Abortion induced [Recovered/Resolved]
  - Exposure during pregnancy [Recovered/Resolved]

NARRATIVE: CASE EVENT DATE: 20191116
